FAERS Safety Report 5414270-4 (Version None)
Quarter: 2007Q3

REPORT INFORMATION
  Report Type: 
  Country: None (occurrence: None)
  Receive Date: 20070814
  Receipt Date: 20070802
  Transmission Date: 20080115
  Serious: Yes (Other)
  Sender: FDA-Public Use
  Company Number: GB-PFIZER INC-2007065455

PATIENT
  Age: 27 Year
  Sex: Male

DRUGS (3)
  1. LYRICA [Suspect]
     Indication: EPILEPSY
     Route: 048
     Dates: start: 20061101, end: 20070501
  2. LAMICTAL [Concomitant]
     Indication: EPILEPSY
     Route: 048
  3. TOPAMAX [Concomitant]
     Indication: EPILEPSY
     Route: 048

REACTIONS (1)
  - CONVULSION [None]
